FAERS Safety Report 4649161-X (Version None)
Quarter: 2005Q2

REPORT INFORMATION
  Report Type: 
  Country: None (occurrence: None)
  Receive Date: 20050427
  Receipt Date: 20050408
  Transmission Date: 20051028
  Serious: Yes (Life-Threatening, Hospitalization)
  Sender: FDA-Public Use
  Company Number: US_0504115299

PATIENT
  Age: 69 Year
  Sex: Female

DRUGS (12)
  1. HUMULIN 70/30 [Suspect]
  2. VANCOMYCIN HYDROCHLORIDE [Suspect]
  3. MICARDIS [Concomitant]
  4. RAMIPRIL [Concomitant]
  5. ATORVASTATIN [Concomitant]
  6. ISORDIL [Concomitant]
  7. METOPROLOL [Concomitant]
  8. SYNTHROID [Concomitant]
  9. PROTONIX [Concomitant]
  10. WARFARIN [Concomitant]
  11. LASIX [Concomitant]
  12. FERROUS GLUCONATE [Concomitant]

REACTIONS (3)
  - HAEMODIALYSIS [None]
  - MENTAL STATUS CHANGES [None]
  - RENAL FAILURE ACUTE [None]
